FAERS Safety Report 9030272 (Version 3)
Quarter: 2013Q3

REPORT INFORMATION
  Report Type: Report from Study
  Country: US (occurrence: US)
  Receive Date: 20130122
  Receipt Date: 20130822
  Transmission Date: 20140515
  Serious: Yes (Hospitalization)
  Sender: FDA-Public Use
  Company Number: US-ACTELION-A-US2013-77737

PATIENT
  Age: 63 Year
  Sex: Female

DRUGS (22)
  1. TRACLEER [Suspect]
     Indication: PULMONARY ARTERIAL HYPERTENSION
     Dosage: 125
     Route: 048
     Dates: start: 2011
  2. OXYGEN [Concomitant]
     Dosage: 3 L/MIN, CONTINUOUS
     Dates: start: 2010
  3. LASIX [Concomitant]
     Dosage: 80 MG, BID
  4. POTASSIUM [Concomitant]
     Dosage: 20 MEQ, BID
  5. LORAZEPAM [Concomitant]
     Dosage: 0.5 MG, TID
  6. LYRICA [Concomitant]
     Dosage: 100 MG, BID
  7. THEOPHYLLINE [Concomitant]
     Dosage: 300 MG, BID
  8. VICODIN [Concomitant]
     Dosage: 10 MG, TID
  9. FLONASE [Concomitant]
     Dosage: 50 MCG, PRN
  10. VITAMIN D [Concomitant]
     Dosage: 1000 MG, UNK
  11. COZAAR [Concomitant]
     Dosage: 25 MG, UNK
  12. DUONEB [Concomitant]
     Dosage: NEBULIZER
  13. PREDNISONE [Concomitant]
     Dosage: 10 MG, UNK
  14. PULMICORT [Concomitant]
     Dosage: UNK PUFF, UNK
  15. PRAVASTATIN [Concomitant]
     Dosage: 40 MG, UNK
  16. VENTOLIN [Concomitant]
     Dosage: 2 PUFF,
  17. MUCINEX [Concomitant]
     Dosage: 400 MG, UNK
  18. SERTRALINE [Concomitant]
     Dosage: 25 MG, UNK
  19. SINGULAIR [Concomitant]
     Dosage: 10 MG, UNK
  20. ZYRTEC [Concomitant]
     Dosage: 10 MG, UNK
  21. AMPICILLIN [Concomitant]
     Dosage: 500 MG QD X 10D/MONTH
  22. DOXYCYCLINE [Concomitant]
     Dosage: 100 MG QD X 10D/MONTH

REACTIONS (6)
  - Gastroenteritis viral [Unknown]
  - Diarrhoea [Unknown]
  - Fluid retention [Unknown]
  - Dehydration [Unknown]
  - Dyspnoea [Recovering/Resolving]
  - Volvulus [Recovered/Resolved]
